FAERS Safety Report 20035461 (Version 1)
Quarter: 2021Q4

REPORT INFORMATION
  Report Type: Spontaneous
  Country: US (occurrence: US)
  Receive Date: 20211104
  Receipt Date: 20211104
  Transmission Date: 20220303
  Serious: Yes (Other)
  Sender: FDA-Public Use
  Company Number: US-NOVOPROD-827312

PATIENT
  Sex: Male

DRUGS (1)
  1. FIASP [Suspect]
     Active Substance: INSULIN ASPART
     Indication: Product used for unknown indication
     Dosage: 2 IU, QD
     Route: 058
     Dates: start: 20210702

REACTIONS (2)
  - Blood glucose increased [Not Recovered/Not Resolved]
  - Product communication issue [Not Recovered/Not Resolved]

NARRATIVE: CASE EVENT DATE: 20210702
